FAERS Safety Report 13921214 (Version 1)
Quarter: 2017Q3

REPORT INFORMATION
  Report Type: Spontaneous
  Country: FR (occurrence: FR)
  Receive Date: 20170830
  Receipt Date: 20170830
  Transmission Date: 20171127
  Serious: Yes (Other)
  Sender: FDA-Public Use
  Company Number: FR-JNJFOC-20170819199

PATIENT
  Age: 33 Year
  Sex: Male

DRUGS (11)
  1. TIAPRIDAL [Suspect]
     Active Substance: TIAPRIDE HYDROCHLORIDE
     Indication: NERVOUS SYSTEM DISORDER
     Route: 048
     Dates: start: 20170801, end: 20170801
  2. DEPAKINE [Concomitant]
     Active Substance: VALPROATE SODIUM
     Indication: NERVOUS SYSTEM DISORDER
     Route: 065
  3. HALDOL [Suspect]
     Active Substance: HALOPERIDOL
     Indication: NERVOUS SYSTEM DISORDER
     Route: 048
     Dates: start: 20170801, end: 20170801
  4. DEBRIDAT [Concomitant]
     Active Substance: TRIMEBUTINE MALEATE
     Indication: NERVOUS SYSTEM DISORDER
     Route: 065
  5. CIRCADIN [Concomitant]
     Active Substance: MELATONIN
     Indication: NERVOUS SYSTEM DISORDER
     Route: 065
  6. DEPAMIDE [Suspect]
     Active Substance: VALPROMIDE
     Indication: NERVOUS SYSTEM DISORDER
     Route: 048
     Dates: start: 20170801, end: 20170801
  7. VALIUM [Suspect]
     Active Substance: DIAZEPAM
     Indication: NERVOUS SYSTEM DISORDER
     Route: 048
     Dates: start: 20170801, end: 20170801
  8. ANAFRANIL [Concomitant]
     Active Substance: CLOMIPRAMINE HYDROCHLORIDE
     Indication: NERVOUS SYSTEM DISORDER
     Route: 065
  9. HEPT-A-MYL [Suspect]
     Active Substance: HEPTAMINOL HYDROCHLORIDE
     Indication: NERVOUS SYSTEM DISORDER
     Route: 048
     Dates: start: 20170801, end: 20170801
  10. MESTINON [Concomitant]
     Active Substance: PYRIDOSTIGMINE BROMIDE
     Indication: NERVOUS SYSTEM DISORDER
     Route: 065
  11. LOXAPAC [Suspect]
     Active Substance: LOXAPINE SUCCINATE
     Indication: NERVOUS SYSTEM DISORDER
     Route: 048
     Dates: start: 20170801, end: 20170801

REACTIONS (4)
  - Medication error [Recovered/Resolved]
  - Somnolence [Recovered/Resolved]
  - Wrong patient received medication [Recovered/Resolved]
  - Tachycardia [Recovered/Resolved]

NARRATIVE: CASE EVENT DATE: 20170801
